FAERS Safety Report 5978678-0 (Version None)
Quarter: 2008Q4

REPORT INFORMATION
  Report Type: 
  Country: None (occurrence: None)
  Receive Date: 20081204
  Receipt Date: 20081126
  Transmission Date: 20090506
  Serious: Yes (Other)
  Sender: FDA-Public Use
  Company Number: ES-JNJFOC-20081106445

PATIENT
  Age: 56 Year
  Sex: Female

DRUGS (2)
  1. DOXORUBICIN HCL [Suspect]
     Indication: METASTASES TO PERITONEUM
     Route: 042
  2. DOXORUBICIN HCL [Suspect]
     Indication: ENDOMETRIAL CANCER
     Dosage: 2 DOSES
     Route: 042

REACTIONS (3)
  - RASH ERYTHEMATOUS [None]
  - SKIN EROSION [None]
  - SKIN EXFOLIATION [None]
